FAERS Safety Report 11107480 (Version 1)
Quarter: 2015Q2

REPORT INFORMATION
  Report Type: Spontaneous
  Country: US (occurrence: US)
  Receive Date: 20150512
  Receipt Date: 20150512
  Transmission Date: 20150821
  Serious: Yes (Other)
  Sender: FDA-Public Use
  Company Number: US-SHIONOGI, INC-2015000548

PATIENT
  Sex: Female

DRUGS (3)
  1. KEFLEX [Suspect]
     Active Substance: CEPHALEXIN
     Indication: PRODUCT USED FOR UNKNOWN INDICATION
     Dosage: 250 MG, QD
     Route: 065
     Dates: start: 20140321, end: 2014
  2. KEFLEX [Suspect]
     Active Substance: CEPHALEXIN
     Dosage: 250 MG, BID
     Route: 065
     Dates: start: 2014, end: 20140421
  3. KEFLEX [Suspect]
     Active Substance: CEPHALEXIN
     Dosage: 250 MG, BID
     Route: 065
     Dates: start: 2014, end: 2014

REACTIONS (5)
  - Fungal infection [Unknown]
  - Seizure [Unknown]
  - Diarrhoea [Unknown]
  - Headache [Unknown]
  - Drug dispensing error [Unknown]

NARRATIVE: CASE EVENT DATE: 2014
